FAERS Safety Report 18225634 (Version 29)
Quarter: 2022Q4

REPORT INFORMATION
  Report Type: Spontaneous
  Country: DE (occurrence: DE)
  Receive Date: 20200903
  Receipt Date: 20221118
  Transmission Date: 20230113
  Serious: Yes (Hospitalization, Other)
  Sender: FDA-Public Use
  Company Number: DE-ROCHE-2546129

PATIENT
  Age: 44 Year
  Sex: Female
  Weight: 65 kg

DRUGS (35)
  1. OXYCODONE [Suspect]
     Active Substance: OXYCODONE
     Indication: Pain
     Dosage: 10 MILLIGRAM, TWO TIMES A DAY(TOGETHER WITH NALOXON )
     Route: 065
  2. OXYCODONE [Suspect]
     Active Substance: OXYCODONE
     Dosage: 20 MILLIGRAM, TWO TIMES A DAY
     Route: 065
     Dates: start: 20210513, end: 20210513
  3. OXYCODONE [Suspect]
     Active Substance: OXYCODONE
     Dosage: 40 MILLIGRAM, ONCE A DAY
     Route: 065
     Dates: start: 20210513, end: 20210513
  4. OXYCODONE [Suspect]
     Active Substance: OXYCODONE
     Dosage: FREQ:TOGETHER WITH NALOXON
     Route: 065
  5. OXYCODONE [Suspect]
     Active Substance: OXYCODONE
     Dosage: 5 MILLIGRAM, ONCE A DAY (5 MG, 1X/DAY)
     Route: 065
  6. PANTOPRAZOLE [Suspect]
     Active Substance: PANTOPRAZOLE
     Indication: Product used for unknown indication
     Dosage: 20 MILLIGRAM
     Route: 065
  7. COMIRNATY [Suspect]
     Active Substance: TOZINAMERAN
     Indication: COVID-19 immunisation
     Dosage: DOSE 1, SINGLE(NEXT DOSE ON: 28/MAY/2021 )
     Route: 042
     Dates: start: 20210428, end: 20210428
  8. CORTISONE [Suspect]
     Active Substance: CORTISONE
     Indication: Product used for unknown indication
     Dosage: 1000 MILLIGRAM, 0.33 DAY
     Route: 065
     Dates: start: 20200511
  9. CORTISONE [Suspect]
     Active Substance: CORTISONE
     Dosage: 3000 MILLIGRAM, ONCE A DAY (1000 MG, 3X/DAY)
     Route: 065
  10. NALOXONE HYDROCHLORIDE [Suspect]
     Active Substance: NALOXONE HYDROCHLORIDE
     Indication: Product used for unknown indication
     Dosage: 5 MILLIGRAM, TWO TIMES A DAY TOGETHER WITH OXYCODON
     Route: 065
     Dates: start: 20210513
  11. NALOXONE HYDROCHLORIDE [Suspect]
     Active Substance: NALOXONE HYDROCHLORIDE
     Dosage: 2.5 MILLIGRAM (1-0-0)
     Route: 065
     Dates: start: 20210513
  12. OCREVUS [Suspect]
     Active Substance: OCRELIZUMAB
     Indication: Secondary progressive multiple sclerosis
     Dosage: 300 MILLIGRAM(EVERY 14 DAYS)INFUSION
     Route: 042
     Dates: start: 20200206, end: 20200220
  13. OCREVUS [Suspect]
     Active Substance: OCRELIZUMAB
     Dosage: 600 MILLIGRAM,168 DAY
     Route: 042
     Dates: start: 20200206
  14. OCREVUS [Suspect]
     Active Substance: OCRELIZUMAB
     Dosage: 300 MILLIGRAM (INFUSION)
     Route: 042
     Dates: start: 20200220
  15. OCREVUS [Suspect]
     Active Substance: OCRELIZUMAB
     Dosage: 600 MILLIGRAM 168 DAYS (2X 10 MILLILITRES)(INFUSION)
     Route: 042
     Dates: start: 20200813
  16. OCREVUS [Suspect]
     Active Substance: OCRELIZUMAB
     Dosage: 600 MILLIGRAM EVERY 168 DAYS
     Route: 042
     Dates: start: 20210715
  17. NABIXIMOLS [Suspect]
     Active Substance: NABIXIMOLS
     Indication: Product used for unknown indication
     Dosage: 2 DOSAGE FORM 0.16 DAY (2-2-2, 2 PUFFS EACH)
     Route: 065
     Dates: start: 202007
  18. NABIXIMOLS [Suspect]
     Active Substance: NABIXIMOLS
     Dosage: UNK (SPRAY, SUSPENSION)
     Route: 065
     Dates: start: 202007
  19. AMITRIPTYLINE [Concomitant]
     Active Substance: AMITRIPTYLINE
     Indication: Pain
     Dosage: 25 MILLIGRAM, ONCE A DAY (0-0-1)
     Route: 065
  20. AMITRIPTYLINE [Concomitant]
     Active Substance: AMITRIPTYLINE
     Dosage: 50 MILLIGRAM, ONCE A DAY (0-0-1)
     Route: 065
  21. AMITRIPTYLINE [Concomitant]
     Active Substance: AMITRIPTYLINE
     Dosage: 25 MILLIGRAM, ONCE A DAY
     Route: 048
     Dates: start: 2019
  22. DULOXETINE [Concomitant]
     Active Substance: DULOXETINE
     Indication: Product used for unknown indication
     Dosage: 30 MILLIGRAM, TWO TIMES A DAY
     Route: 065
  23. DESOGESTREL [Concomitant]
     Active Substance: DESOGESTREL
     Indication: Product used for unknown indication
     Dosage: UNK
     Route: 065
  24. MIRTAZAPINE [Concomitant]
     Active Substance: MIRTAZAPINE
     Indication: Product used for unknown indication
     Dosage: 7.5 MILLIGRAM
     Route: 065
  25. MOVICOL [Concomitant]
     Active Substance: POLYETHYLENE GLYCOL 3350\POTASSIUM CHLORIDE\SODIUM BICARBONATE\SODIUM CHLORIDE
     Indication: Product used for unknown indication
     Dosage: UNK, ONCE A DAY (1-0-0)
     Route: 065
  26. METAMIZOLE [Concomitant]
     Active Substance: METAMIZOLE
     Indication: Product used for unknown indication
     Dosage: 500 MILLIGRAM
     Route: 065
  27. PANTOPRAZOLE [Concomitant]
     Active Substance: PANTOPRAZOLE
     Indication: Product used for unknown indication
     Dosage: 20 MILLIGRAM (UPTO 3X/DAY)
     Route: 065
  28. ACETAMINOPHEN [Concomitant]
     Active Substance: ACETAMINOPHEN
     Indication: Product used for unknown indication
     Dosage: 3 TIMES A DAY
     Route: 065
  29. ACETAMINOPHEN [Concomitant]
     Active Substance: ACETAMINOPHEN
     Dosage: ONCE A DAY (TID)
     Route: 065
  30. PREGABALIN [Concomitant]
     Active Substance: PREGABALIN
     Indication: Pain
     Dosage: 100 MILLIGRAM, 0.16 DAY (2-2-2)
     Route: 065
  31. PREGABALIN [Concomitant]
     Active Substance: PREGABALIN
     Dosage: 600 MILLIGRAM
     Route: 065
     Dates: start: 2009
  32. PREGABALIN [Concomitant]
     Active Substance: PREGABALIN
     Dosage: 200 MILLIGRAM, 0.33 DAY
     Route: 065
  33. PREGABALIN [Concomitant]
     Active Substance: PREGABALIN
     Dosage: 600 MILLIGRAM
     Route: 048
     Dates: start: 2019
  34. PREGABALIN [Concomitant]
     Active Substance: PREGABALIN
     Dosage: 300 MILLIGRAM, ONCE A DAY (100 MILLIGRAM, TID)
     Route: 065
  35. MAGNESIUM [Concomitant]
     Active Substance: MAGNESIUM
     Indication: Product used for unknown indication
     Dosage: 400 MILLIGRAM
     Route: 065

REACTIONS (62)
  - Multiple sclerosis relapse [Recovered/Resolved]
  - Loss of consciousness [Not Recovered/Not Resolved]
  - Thyroid mass [Recovering/Resolving]
  - Benign neoplasm of thyroid gland [Not Recovered/Not Resolved]
  - Memory impairment [Unknown]
  - Fatigue [Recovered/Resolved]
  - Musculoskeletal stiffness [Recovered/Resolved]
  - Feeling cold [Recovered/Resolved]
  - Chills [Recovered/Resolved]
  - Head discomfort [Recovered/Resolved]
  - Headache [Recovered/Resolved]
  - Dry skin [Recovered/Resolved]
  - Fungal foot infection [Recovered/Resolved]
  - Pain in extremity [Not Recovered/Not Resolved]
  - Photophobia [Recovered/Resolved]
  - Coordination abnormal [Recovered/Resolved]
  - Speech disorder [Recovered/Resolved]
  - Hyperacusis [Recovered/Resolved]
  - Muscular weakness [Recovered/Resolved]
  - Vaginal discharge [Unknown]
  - Muscle spasticity [Recovered/Resolved]
  - Joint range of motion decreased [Recovered/Resolved]
  - Menstruation irregular [Unknown]
  - Mood swings [Recovered/Resolved]
  - Constipation [Recovered/Resolved]
  - Back pain [Recovered/Resolved]
  - Pain [Recovering/Resolving]
  - Alopecia [Recovered/Resolved]
  - Vomiting [Recovered/Resolved]
  - Tongue movement disturbance [Recovering/Resolving]
  - Dysphagia [Recovered/Resolved]
  - Dyskinesia [Recovered/Resolved]
  - Odynophagia [Recovering/Resolving]
  - Urinary incontinence [Recovered/Resolved]
  - Irritability [Recovering/Resolving]
  - Eye pain [Recovered/Resolved]
  - Anal incontinence [Recovered/Resolved]
  - Cognitive disorder [Recovered/Resolved]
  - Dyspnoea [Recovered/Resolved]
  - Painful respiration [Recovered/Resolved]
  - Sensory disturbance [Recovering/Resolving]
  - Muscle spasms [Recovered/Resolved]
  - Asthenia [Recovered/Resolved]
  - Fall [Unknown]
  - Arthralgia [Recovered/Resolved]
  - Tooth injury [Recovered/Resolved]
  - Nail ridging [Recovering/Resolving]
  - Acne pustular [Recovered/Resolved]
  - Ocular discomfort [Recovering/Resolving]
  - Pruritus [Recovering/Resolving]
  - Weight increased [Recovering/Resolving]
  - Sleep apnoea syndrome [Recovered/Resolved]
  - Confusional state [Not Recovered/Not Resolved]
  - Ill-defined disorder [Unknown]
  - Burning sensation [Recovered/Resolved]
  - COVID-19 [Recovered/Resolved]
  - Arthropod bite [Unknown]
  - Productive cough [Recovered/Resolved]
  - Muscle twitching [Recovered/Resolved]
  - Intentional product use issue [Unknown]
  - Product use in unapproved indication [Unknown]
  - Off label use [Unknown]

NARRATIVE: CASE EVENT DATE: 20200206
